FAERS Safety Report 8630101 (Version 3)
Quarter: 2012Q4

REPORT INFORMATION
  Report Type: 
  Country: JP (occurrence: JP)
  Receive Date: 20120622
  Receipt Date: 20121217
  Transmission Date: 20130627
  Serious: Yes (Hospitalization)
  Sender: FDA-Public Use
  Company Number: JP-EISAI INC-E7389-02561-SPO-JP

PATIENT
  Age: 74 Year
  Sex: Female
  Weight: 43 kg

DRUGS (8)
  1. HALAVEN [Suspect]
     Indication: BREAST CANCER
     Dosage: UNKNOWN
     Route: 041
     Dates: start: 20111130
  2. LENDORMIN [Concomitant]
     Route: 048
  3. METHYCOBAL [Concomitant]
     Route: 048
  4. REBAMIPIDE [Concomitant]
     Route: 048
  5. PREGABALIN [Concomitant]
     Route: 048
  6. LORFENAMIN [Concomitant]
     Route: 048
  7. GOSHAJINKIGAN [Concomitant]
     Route: 048
  8. PRIMPERAN [Concomitant]
     Route: 048

REACTIONS (2)
  - Bladder tamponade [Recovering/Resolving]
  - Urinary tract infection [Recovering/Resolving]
